FAERS Safety Report 16992578 (Version 1)
Quarter: 2019Q4

REPORT INFORMATION
  Report Type: Spontaneous
  Country: CA (occurrence: CA)
  Receive Date: 20191105
  Receipt Date: 20191105
  Transmission Date: 20200122
  Serious: Yes (Hospitalization, Other)
  Sender: FDA-Public Use
  Company Number: CA-TEVA-2019-CA-1130949

PATIENT
  Age: 44 Year
  Sex: Male

DRUGS (13)
  1. MYCOPHENOLATE MOFETIL. [Suspect]
     Active Substance: MYCOPHENOLATE MOFETIL
     Indication: IMMUNOSUPPRESSANT DRUG THERAPY
     Route: 065
  2. ALEMTUZUMAB [Suspect]
     Active Substance: ALEMTUZUMAB
     Indication: PANCREAS TRANSPLANT
     Route: 041
  3. ENBREL [Suspect]
     Active Substance: ETANERCEPT
     Indication: TRANSPLANT
     Route: 065
  4. SIROLIMUS. [Suspect]
     Active Substance: SIROLIMUS
     Indication: TRANSPLANT
     Route: 065
  5. SIROLIMUS. [Suspect]
     Active Substance: SIROLIMUS
     Indication: IMMUNOSUPPRESSION
     Route: 065
  6. TACROLIMUS. [Suspect]
     Active Substance: TACROLIMUS
     Indication: PANCREAS TRANSPLANT
     Route: 065
  7. MYCOPHENOLATE MOFETIL. [Suspect]
     Active Substance: MYCOPHENOLATE MOFETIL
     Indication: PANCREAS TRANSPLANT
     Route: 041
  8. ANAKINRA [Suspect]
     Active Substance: ANAKINRA
     Indication: IMMUNOSUPPRESSANT DRUG THERAPY
     Route: 065
  9. RAPAMUNE [Suspect]
     Active Substance: SIROLIMUS
     Indication: PRODUCT USED FOR UNKNOWN INDICATION
     Route: 065
  10. ANAKINRA [Suspect]
     Active Substance: ANAKINRA
     Indication: PANCREAS TRANSPLANT
     Route: 065
  11. ENBREL [Suspect]
     Active Substance: ETANERCEPT
     Indication: IMMUNOSUPPRESSION
     Route: 065
  12. TACROLIMUS. [Suspect]
     Active Substance: TACROLIMUS
     Indication: IMMUNOSUPPRESSANT DRUG THERAPY
  13. ALEMTUZUMAB [Suspect]
     Active Substance: ALEMTUZUMAB
     Indication: IMMUNOSUPPRESSANT DRUG THERAPY

REACTIONS (20)
  - Diffuse large B-cell lymphoma [Recovered/Resolved]
  - Normocytic anaemia [Recovered/Resolved]
  - Propionibacterium infection [Recovered/Resolved]
  - Abdominal pain [Recovered/Resolved]
  - Enteritis [Recovered/Resolved]
  - Febrile neutropenia [Recovered/Resolved]
  - Gait disturbance [Recovered/Resolved]
  - Headache [Recovered/Resolved]
  - Meningitis viral [Recovered/Resolved]
  - Diarrhoea haemorrhagic [Recovered/Resolved]
  - Weight decreased [Recovered/Resolved]
  - Central nervous system lymphoma [Recovered/Resolved]
  - Nystagmus [Recovered/Resolved]
  - Diplopia [Recovered/Resolved]
  - Post transplant lymphoproliferative disorder [Recovered/Resolved]
  - Sepsis [Recovered/Resolved]
  - Transplant failure [Recovered/Resolved]
  - Vertigo [Recovered/Resolved]
  - Acute kidney injury [Recovered/Resolved]
  - Product use in unapproved indication [Recovered/Resolved]
